FAERS Safety Report 10366810 (Version 1)
Quarter: 2014Q3

REPORT INFORMATION
  Report Type: Spontaneous
  Country: US (occurrence: US)
  Receive Date: 20140807
  Receipt Date: 20140807
  Transmission Date: 20150326
  Serious: Yes (Other)
  Sender: FDA-Public Use
  Company Number: US-SA-2014SA103240

PATIENT
  Sex: Female

DRUGS (5)
  1. ALEMTUZUMAB [Suspect]
     Active Substance: ALEMTUZUMAB
     Indication: MYCOSIS FUNGOIDES
     Dosage: AT REDUCED DOSE
     Route: 065
  2. ALEMTUZUMAB [Suspect]
     Active Substance: ALEMTUZUMAB
     Indication: MYCOSIS FUNGOIDES
     Dosage: RESUMED AT FULL DOSE WITH PREMEDICATION OF DEXAMETHASONE
     Route: 065
  3. ALEMTUZUMAB [Suspect]
     Active Substance: ALEMTUZUMAB
     Indication: MYCOSIS FUNGOIDES
     Route: 058
  4. ALEMTUZUMAB [Suspect]
     Active Substance: ALEMTUZUMAB
     Indication: MYCOSIS FUNGOIDES
     Dosage: ONE MONTH AFTER RECURRENCE OF SEZARY SYNDROME
     Route: 065
  5. DEXAMETHASONE. [Concomitant]
     Active Substance: DEXAMETHASONE
     Indication: PREMEDICATION

REACTIONS (3)
  - Histiocytosis haematophagic [Unknown]
  - Skin plaque [Recovered/Resolved]
  - Off label use [Unknown]
